FAERS Safety Report 19057813 (Version 1)
Quarter: 2021Q1

REPORT INFORMATION
  Report Type: Spontaneous
  Country: US (occurrence: US)
  Receive Date: 20210325
  Receipt Date: 20210325
  Transmission Date: 20210420
  Serious: Yes (Death)
  Sender: FDA-Public Use
  Company Number: None

PATIENT
  Age: 72 Year
  Sex: Male

DRUGS (13)
  1. NUPLAZID [Suspect]
     Active Substance: PIMAVANSERIN TARTRATE
     Indication: PARKINSON^S DISEASE
     Route: 048
     Dates: start: 20200916, end: 20210323
  2. CARVEDILOL 6.25MG [Concomitant]
     Active Substance: CARVEDILOL
  3. NUPLAZID [Suspect]
     Active Substance: PIMAVANSERIN TARTRATE
     Indication: HALLUCINATION
     Route: 048
     Dates: start: 20200916, end: 20210323
  4. TYLENOL [Concomitant]
     Active Substance: ACETAMINOPHEN
  5. CARBIDOPA/LEVODOPA 25MG?250MG [Concomitant]
  6. LOSARTAN 50MG [Concomitant]
     Active Substance: LOSARTAN
  7. SEVELAMER 800MG [Concomitant]
     Active Substance: SEVELAMER
  8. QUETIAPINE 25MG [Concomitant]
     Active Substance: QUETIAPINE
  9. METFORMIN [Concomitant]
     Active Substance: METFORMIN HYDROCHLORIDE
  10. AMLODIPINE [Concomitant]
     Active Substance: AMLODIPINE BESYLATE
  11. FERROUS SULFATE 325MG [Concomitant]
     Active Substance: FERROUS SULFATE
  12. REPAGLINDE 1MG [Concomitant]
  13. FUROSEMIDE 20MG [Concomitant]
     Active Substance: FUROSEMIDE

REACTIONS (3)
  - Disease complication [None]
  - Renal failure [None]
  - COVID-19 [None]

NARRATIVE: CASE EVENT DATE: 20210323
